FAERS Safety Report 8958851 (Version 5)
Quarter: 2013Q1

REPORT INFORMATION
  Report Type: Spontaneous
  Country: JP (occurrence: JP)
  Receive Date: 20121211
  Receipt Date: 20130115
  Transmission Date: 20140127
  Serious: Yes (Other)
  Sender: FDA-Public Use
  Company Number: JP-MERCK-1212JPN002715

PATIENT
  Age: 82 Year
  Sex: Female

DRUGS (12)
  1. BONALON [Suspect]
     Indication: OSTEOPOROSIS
     Dosage: 5 MG, QD
     Route: 048
     Dates: start: 200707, end: 20110924
  2. SPIROPENT [Concomitant]
     Dosage: 40 MICROGRAM, QD
     Route: 048
  3. ONEALFA [Concomitant]
     Indication: OSTEOPOROSIS
     Dosage: 1 MICROGRAM, QD
     Route: 048
  4. ITOROL [Concomitant]
     Indication: ANGINA PECTORIS
     Dosage: 40 MG, QD
     Route: 048
  5. SLOW-K [Concomitant]
     Dosage: 600 MG, QD
     Route: 048
  6. LUPRAC [Concomitant]
     Dosage: 4 MG, QD
     Route: 048
  7. OMEPRAL [Concomitant]
     Dosage: 10 MG, QD
     Route: 048
  8. EBASTEL [Concomitant]
     Dosage: 10 MG, QD
     Route: 048
  9. DIART [Concomitant]
     Dosage: 30 MG, QD
     Route: 048
  10. BAYASPIRIN [Concomitant]
     Indication: ANGINA PECTORIS
     Dosage: 100 MG, QD
     Route: 048
  11. MEVALOTIN [Concomitant]
     Indication: HYPERLIPIDAEMIA
     Dosage: 5 MG, QD
     Route: 048
  12. CINAL [Concomitant]
     Dosage: UNK
     Route: 048

REACTIONS (1)
  - Osteonecrosis of jaw [Recovering/Resolving]
